FAERS Safety Report 10447544 (Version 2)
Quarter: 2014Q3

REPORT INFORMATION
  Report Type: Spontaneous
  Country: US (occurrence: US)
  Receive Date: 20140911
  Receipt Date: 20140911
  Transmission Date: 20150326
  Serious: No
  Sender: FDA-Public Use
  Company Number: US-BEH-2014042058

PATIENT
  Age: 48 Year
  Sex: Female
  Weight: 137 kg

DRUGS (25)
  1. ZEMAIRA [Suspect]
     Active Substance: .ALPHA.1-PROTEINASE INHIBITOR HUMAN
  2. DIPHENHYDRAMINE [Concomitant]
     Active Substance: DIPHENHYDRAMINE
  3. SODIUM CHLORIDE. [Concomitant]
     Active Substance: SODIUM CHLORIDE
  4. NAPROXEN. [Concomitant]
     Active Substance: NAPROXEN
  5. IPRATROPIUM [Concomitant]
     Active Substance: IPRATROPIUM
  6. CIPRO [Concomitant]
     Active Substance: CIPROFLOXACIN HYDROCHLORIDE
  7. ALBUTEROL SULFATE. [Concomitant]
     Active Substance: ALBUTEROL SULFATE
  8. ARALAST [Concomitant]
     Active Substance: .ALPHA.1-PROTEINASE INHIBITOR HUMAN
  9. LASIX [Concomitant]
     Active Substance: FUROSEMIDE
  10. BUDESONIDE. [Concomitant]
     Active Substance: BUDESONIDE
     Dosage: 0.25MG/2ML
  11. ZEMAIRA [Suspect]
     Active Substance: .ALPHA.1-PROTEINASE INHIBITOR HUMAN
     Route: 042
  12. OXYGEN. [Concomitant]
     Active Substance: OXYGEN
  13. LIDOCAINE. [Concomitant]
     Active Substance: LIDOCAINE
  14. LISINOPRIL. [Concomitant]
     Active Substance: LISINOPRIL
  15. ZEMAIRA [Suspect]
     Active Substance: .ALPHA.1-PROTEINASE INHIBITOR HUMAN
     Indication: ALPHA-1 ANTI-TRYPSIN DEFICIENCY
     Route: 042
     Dates: start: 20140421, end: 20140421
  16. EPIPEN [Concomitant]
     Active Substance: EPINEPHRINE
  17. PENTAZOCINE-NALOXONE [Concomitant]
     Active Substance: NALOXONE\PENTAZOCINE
  18. PLAVIX [Concomitant]
     Active Substance: CLOPIDOGREL BISULFATE
  19. NORMAL SALINE [Concomitant]
     Active Substance: SODIUM CHLORIDE
  20. OMEPRAZOLE. [Concomitant]
     Active Substance: OMEPRAZOLE
  21. PREDNISONE. [Concomitant]
     Active Substance: PREDNISONE
  22. LEVOTHYROXINE [Concomitant]
     Active Substance: LEVOTHYROXINE
  23. ZYLOPRIM [Concomitant]
     Active Substance: ALLOPURINOL
  24. ALL OTHER THERAPEUTIC PRODUCTS [Concomitant]
     Active Substance: UNSPECIFIED INGREDIENT
     Dosage: 15 MCG/2ML
  25. LMX [Concomitant]
     Active Substance: LIDOCAINE

REACTIONS (7)
  - Injection site hypoaesthesia [Unknown]
  - Oedema [Unknown]
  - Injection site paraesthesia [Recovered/Resolved]
  - Peripheral swelling [Recovered/Resolved]
  - Myalgia [Unknown]
  - Fatigue [Unknown]
  - Pain in extremity [Unknown]

NARRATIVE: CASE EVENT DATE: 20140421
